FAERS Safety Report 10171831 (Version 2)
Quarter: 2014Q2

REPORT INFORMATION
  Report Type: Spontaneous
  Country: CA (occurrence: CA)
  Receive Date: 20140514
  Receipt Date: 20140514
  Transmission Date: 20141212
  Serious: Yes (Hospitalization)
  Sender: FDA-Public Use
  Company Number: CA-BAXTER-2014BAX021760

PATIENT
  Sex: Male

DRUGS (2)
  1. DIANEAL PD4 SOLUTION WITH 2.5% DEXTROSE AND 2.5 MEQ/L CALCIUM [Suspect]
     Indication: PERITONEAL DIALYSIS
     Route: 033
     Dates: start: 20101013
  2. EXTRANEAL [Suspect]
     Indication: PERITONEAL DIALYSIS
     Route: 033
     Dates: start: 20101013

REACTIONS (6)
  - Headache [Recovered/Resolved]
  - Disturbance in attention [Recovered/Resolved]
  - Quadriplegia [Recovered/Resolved]
  - Laboratory test abnormal [Recovered/Resolved]
  - Cough [Not Recovered/Not Resolved]
  - Drug intolerance [Unknown]
